FAERS Safety Report 11987211 (Version 1)
Quarter: 2016Q1

REPORT INFORMATION
  Report Type: Report from Study
  Country: US (occurrence: US)
  Receive Date: 20160202
  Receipt Date: 20160202
  Transmission Date: 20160526
  Serious: No
  Sender: FDA-Public Use
  Company Number: US-ABBVIE-15K-163-1341845-00

PATIENT
  Age: 16 Year
  Sex: Female
  Weight: 40.86 kg

DRUGS (2)
  1. LEFLUNOMIDE. [Concomitant]
     Active Substance: LEFLUNOMIDE
     Indication: JUVENILE IDIOPATHIC ARTHRITIS
  2. HUMIRA [Suspect]
     Active Substance: ADALIMUMAB
     Indication: JUVENILE IDIOPATHIC ARTHRITIS
     Route: 058
     Dates: start: 201412

REACTIONS (1)
  - Injection site haemorrhage [Not Recovered/Not Resolved]

NARRATIVE: CASE EVENT DATE: 201412
